FAERS Safety Report 18797302 (Version 2)
Quarter: 2021Q1

REPORT INFORMATION
  Report Type: Report from Study
  Country: DE (occurrence: DE)
  Receive Date: 20210127
  Receipt Date: 20210329
  Transmission Date: 20210419
  Serious: Yes (Other)
  Sender: FDA-Public Use
  Company Number: DE-AMGEN-DEUNI2021011061

PATIENT
  Age: 76 Year
  Sex: Male
  Weight: 72 kg

DRUGS (28)
  1. FOLINIC ACID [Suspect]
     Active Substance: LEUCOVORIN
     Indication: COLORECTAL CANCER METASTATIC
     Dosage: 730 MILLIGRAM
     Route: 065
     Dates: start: 20200707
  2. FOLINIC ACID [Suspect]
     Active Substance: LEUCOVORIN
     Dosage: 560 MILLIGRAM
     Route: 065
     Dates: start: 20200818
  3. FLUOROURACIL. [Suspect]
     Active Substance: FLUOROURACIL
     Dosage: 580 MILLIGRAM
     Route: 040
     Dates: start: 20200804
  4. FLUOROURACIL. [Suspect]
     Active Substance: FLUOROURACIL
     Dosage: 3390 MILLIGRAM
     Route: 042
     Dates: start: 20200818
  5. HYDROCORT [HYDROCORTISONE ACETATE] [Concomitant]
     Dosage: 9999.99 QD
     Route: 062
     Dates: start: 20200813, end: 202008
  6. FOLINIC ACID [Suspect]
     Active Substance: LEUCOVORIN
     Dosage: 580 MILLIGRAM
     Route: 065
     Dates: start: 20201110
  7. OXALIPLATIN. [Suspect]
     Active Substance: OXALIPLATIN
     Indication: COLORECTAL CANCER METASTATIC
     Dosage: 150 MILLIGRAM
     Route: 065
     Dates: start: 20200707
  8. PANITUMUMAB [Suspect]
     Active Substance: PANITUMUMAB
     Dosage: 410 MILLIGRAM
     Route: 042
     Dates: start: 20200818
  9. FLUOROURACIL. [Suspect]
     Active Substance: FLUOROURACIL
     Indication: COLORECTAL CANCER METASTATIC
     Dosage: 730 MILLIGRAM
     Route: 040
     Dates: start: 20200707
  10. FLUOROURACIL. [Suspect]
     Active Substance: FLUOROURACIL
     Dosage: 560 MILLIGRAM
     Route: 040
     Dates: start: 20200818
  11. FLUOROURACIL. [Suspect]
     Active Substance: FLUOROURACIL
     Dosage: 3475 MILLIGRAM
     Route: 042
     Dates: start: 20201013
  12. TAVEGIL [CLEMASTINE] [Concomitant]
     Active Substance: CLEMASTINE
     Indication: PROPHYLAXIS
     Dosage: 2 MILLIGRAM  PER CYCLE
     Route: 042
     Dates: start: 20200807
  13. PANITUMUMAB [Suspect]
     Active Substance: PANITUMUMAB
     Indication: COLORECTAL CANCER METASTATIC
     Dosage: 210 MILLIGRAM
     Route: 042
     Dates: start: 20200104
  14. PANITUMUMAB [Suspect]
     Active Substance: PANITUMUMAB
     Dosage: 225 MILLIGRAM
     Route: 042
     Dates: start: 20210118
  15. FOLINIC ACID [Suspect]
     Active Substance: LEUCOVORIN
     Dosage: 580 MILLIGRAM
     Route: 065
     Dates: start: 20200804
  16. FOLINIC ACID [Suspect]
     Active Substance: LEUCOVORIN
     Dosage: 580 MILLIGRAM
     Route: 065
     Dates: start: 20201013
  17. OXALIPLATIN. [Suspect]
     Active Substance: OXALIPLATIN
     Dosage: 120 MILLIGRAM
     Route: 065
     Dates: start: 20200804
  18. FOLINIC ACID [Suspect]
     Active Substance: LEUCOVORIN
     Dosage: 120 MILLIGRAM
     Route: 065
     Dates: start: 20201027
  19. FLUOROURACIL. [Suspect]
     Active Substance: FLUOROURACIL
     Dosage: 4390 MILLIGRAM
     Route: 042
     Dates: start: 20200707
  20. FLUOROURACIL. [Suspect]
     Active Substance: FLUOROURACIL
     Dosage: 590 MILLIGRAM
     Route: 040
     Dates: start: 20210118
  21. PANITUMUMAB [Suspect]
     Active Substance: PANITUMUMAB
     Dosage: 440 MILLIGRAM
     Route: 042
     Dates: start: 20200707
  22. DEXAMETHASON [DEXAMETHASONE] [Concomitant]
     Active Substance: DEXAMETHASONE
     Indication: PROPHYLAXIS
     Dosage: 16 MILLIGRAM PER CYCLE
     Route: 042
     Dates: start: 20200807
  23. ALOXI [Concomitant]
     Active Substance: PALONOSETRON HYDROCHLORIDE
     Indication: PROPHYLAXIS
     Dosage: 250 MILLIGRAM  PER CYCLE
     Route: 042
     Dates: start: 20200807
  24. PANITUMUMAB [Suspect]
     Active Substance: PANITUMUMAB
     Dosage: 425 MILLIGRAM
     Route: 042
     Dates: start: 20201013
  25. FOLINIC ACID [Suspect]
     Active Substance: LEUCOVORIN
     Dosage: 590 MILLIGRAM
     Route: 065
     Dates: start: 20210118
  26. FLUOROURACIL. [Suspect]
     Active Substance: FLUOROURACIL
     Dosage: 3550 MILLIGRAM
     Route: 042
     Dates: start: 20210118
  27. OXALIPLATIN. [Suspect]
     Active Substance: OXALIPLATIN
     Dosage: 580 MILLIGRAM
     Route: 065
     Dates: start: 20201027
  28. FLUOROURACIL. [Suspect]
     Active Substance: FLUOROURACIL
     Dosage: 580 MILLIGRAM
     Route: 040
     Dates: start: 20201013

REACTIONS (2)
  - Conjunctivitis [Not Recovered/Not Resolved]
  - Extraocular muscle paresis [Not Recovered/Not Resolved]

NARRATIVE: CASE EVENT DATE: 20201118
